FAERS Safety Report 20114126 (Version 1)
Quarter: 2021Q4

REPORT INFORMATION
  Report Type: Spontaneous
  Country: HR (occurrence: HR)
  Receive Date: 20211125
  Receipt Date: 20211125
  Transmission Date: 20220303
  Serious: Yes (Other)
  Sender: FDA-Public Use
  Company Number: None

PATIENT
  Sex: Female

DRUGS (2)
  1. CARVEDILOL [Suspect]
     Active Substance: CARVEDILOL
     Dosage: UNK
     Route: 048
     Dates: start: 20210626, end: 20210626
  2. ACETAMINOPHEN\TRAMADOL HYDROCHLORIDE [Suspect]
     Active Substance: ACETAMINOPHEN\TRAMADOL HYDROCHLORIDE
     Dosage: 1 DF = PARACETAMOL + TRAMADOL CHLORIDE?UNK
     Route: 048
     Dates: start: 20210626, end: 20210626

REACTIONS (4)
  - Vomiting [Unknown]
  - Suicide attempt [Unknown]
  - Loss of consciousness [Unknown]
  - Somnolence [Unknown]

NARRATIVE: CASE EVENT DATE: 20210601
